FAERS Safety Report 9319467 (Version 1)
Quarter: 2013Q2

REPORT INFORMATION
  Report Type: Spontaneous
  Country: US (occurrence: US)
  Receive Date: 20130530
  Receipt Date: 20130530
  Transmission Date: 20140414
  Serious: No
  Sender: FDA-Public Use
  Company Number: US-GLAXOSMITHKLINE-A0987451A

PATIENT
  Age: 64 Year
  Sex: Female

DRUGS (1)
  1. FLOLAN [Suspect]
     Dosage: 55.5NGKM CONTINUOUS
     Route: 065
     Dates: start: 20070829

REACTIONS (2)
  - Diarrhoea [Unknown]
  - Abdominal discomfort [Unknown]
